FAERS Safety Report 11932229 (Version 33)
Quarter: 2022Q1

REPORT INFORMATION
  Report Type: Spontaneous
  Country: NL (occurrence: NL)
  Receive Date: 20160120
  Receipt Date: 20220325
  Transmission Date: 20220424
  Serious: Yes (Death, Hospitalization, Other)
  Sender: FDA-Public Use
  Company Number: NL-ASTELLAS-2016US001878

PATIENT
  Age: 90 Year
  Sex: Male

DRUGS (15)
  1. MIRABEGRON [Suspect]
     Active Substance: MIRABEGRON
     Indication: Bladder disorder
     Dosage: 50 MG, 1 TABLET TWICE DAILY
     Route: 048
     Dates: start: 2015, end: 20160802
  2. MIRABEGRON [Suspect]
     Active Substance: MIRABEGRON
     Route: 048
     Dates: start: 20161011, end: 20210202
  3. VESICARE [Suspect]
     Active Substance: SOLIFENACIN SUCCINATE
     Indication: Bladder pain
     Route: 048
     Dates: start: 20160129
  4. VESICARE [Suspect]
     Active Substance: SOLIFENACIN SUCCINATE
     Route: 048
     Dates: end: 20161111
  5. VESICARE [Suspect]
     Active Substance: SOLIFENACIN SUCCINATE
     Route: 048
     Dates: start: 20161124
  6. VESICARE [Suspect]
     Active Substance: SOLIFENACIN SUCCINATE
     Dosage: 5 MG, AS NEEDED (AD HOC)
     Route: 048
  7. VESICARE [Suspect]
     Active Substance: SOLIFENACIN SUCCINATE
     Route: 048
     Dates: start: 20180308, end: 202002
  8. PRAVASTATIN SODIUM [Concomitant]
     Active Substance: PRAVASTATIN SODIUM
     Indication: Blood cholesterol
     Route: 065
  9. LISINOPRIL AND HYDROCHLOROTHIAZIDE [Concomitant]
     Active Substance: HYDROCHLOROTHIAZIDE\LISINOPRIL
     Indication: Cardiac disorder
     Dosage: 12.5 MG, 1 TABLET ONCE
     Route: 065
  10. LISINOPRIL AND HYDROCHLOROTHIAZIDE [Concomitant]
     Active Substance: HYDROCHLOROTHIAZIDE\LISINOPRIL
     Indication: Angiopathy
  11. METOPROLOL SUCCINATE [Concomitant]
     Active Substance: METOPROLOL SUCCINATE
     Indication: Pain prophylaxis
     Route: 065
  12. OMEPRAZOLE [Concomitant]
     Active Substance: OMEPRAZOLE
     Indication: Abdominal pain upper
     Route: 065
  13. ASPIRIN [Concomitant]
     Active Substance: ASPIRIN
     Indication: Angiopathy
     Route: 065
     Dates: end: 20161111
  14. AMLODIPINE [Concomitant]
     Active Substance: AMLODIPINE BESYLATE
     Indication: Pain prophylaxis
     Route: 065
  15. VITAMIN D [Concomitant]
     Active Substance: VITAMIN D NOS
     Indication: Product used for unknown indication
     Dosage: UNK UNK, ONCE WEEKLY (WILL BE STOPPED AND CHANGED TO VITAMIN D CURE AMPOULE)
     Route: 065

REACTIONS (39)
  - Fall [Fatal]
  - Skin abrasion [Fatal]
  - Upper limb fracture [Fatal]
  - Head injury [Fatal]
  - Urinary bladder haemorrhage [Recovered/Resolved]
  - Dementia Alzheimer^s type [Unknown]
  - Eye contusion [Unknown]
  - Urinary retention [Recovered/Resolved]
  - Thrombosis [Recovered/Resolved]
  - Deep vein thrombosis [Recovering/Resolving]
  - Pain in extremity [Recovering/Resolving]
  - Urinary tract infection [Recovered/Resolved]
  - Somnolence [Unknown]
  - Breast pain [Unknown]
  - Salivary hypersecretion [Unknown]
  - Bladder pain [Recovered/Resolved]
  - Bladder pain [Not Recovered/Not Resolved]
  - Blood urine present [Recovered/Resolved]
  - Contusion [Not Recovered/Not Resolved]
  - Blood urine present [Recovered/Resolved]
  - Blood urine present [Recovered/Resolved]
  - Musculoskeletal chest pain [Not Recovered/Not Resolved]
  - Catheter site related reaction [Unknown]
  - Device leakage [Unknown]
  - Constipation [Recovering/Resolving]
  - Abdominal pain [Not Recovered/Not Resolved]
  - Diarrhoea [Recovered/Resolved]
  - Restlessness [Recovered/Resolved]
  - Blood urine present [Recovered/Resolved]
  - COVID-19 [Recovered/Resolved]
  - Restlessness [Not Recovered/Not Resolved]
  - Blood urine present [Recovered/Resolved]
  - Catheter site haemorrhage [Unknown]
  - Condition aggravated [Not Recovered/Not Resolved]
  - Fall [Unknown]
  - Product use complaint [Not Recovered/Not Resolved]
  - Overdose [Unknown]
  - Off label use [Unknown]
  - Inappropriate schedule of product administration [Unknown]

NARRATIVE: CASE EVENT DATE: 20150101
